FAERS Safety Report 4786135-2 (Version None)
Quarter: 2005Q3

REPORT INFORMATION
  Report Type: 
  Country: None (occurrence: None)
  Receive Date: 20050929
  Receipt Date: 20050921
  Transmission Date: 20060218
  Serious: Yes (Disabling)
  Sender: FDA-Public Use
  Company Number: CIP05002119

PATIENT
  Age: 53 Year
  Sex: Female
  Weight: 38.5 kg

DRUGS (4)
  1. ACTONEL [Suspect]
     Dosage: 35 MG ONCE WEEKLY, ORAL
     Route: 048
     Dates: start: 20010601, end: 20050801
  2. FOSAMAX [Suspect]
     Indication: OSTEOPOROSIS POSTMENOPAUSAL
     Dosage: 70 MG ONCE WEEKLY, ORAL
     Route: 048
     Dates: start: 20010101, end: 20010601
  3. RANITIDINE [Concomitant]
  4. HYDROCODONE (HYDROCODONE) [Concomitant]

REACTIONS (1)
  - OSTEONECROSIS [None]
